FAERS Safety Report 26210415 (Version 1)
Quarter: 2025Q4

REPORT INFORMATION
  Report Type: Spontaneous
  Country: KR (occurrence: KR)
  Receive Date: 20251229
  Receipt Date: 20251229
  Transmission Date: 20260119
  Serious: Yes (Other)
  Sender: JOHNSON AND JOHNSON
  Company Number: KR-JNJFOC-20251235088

PATIENT
  Sex: Female

DRUGS (3)
  1. SIMPONI [Suspect]
     Active Substance: GOLIMUMAB
     Indication: Product used for unknown indication
  2. SIMPONI [Suspect]
     Active Substance: GOLIMUMAB
  3. SIMPONI [Suspect]
     Active Substance: GOLIMUMAB

REACTIONS (1)
  - Ligament rupture [Recovered/Resolved]
